APPROVED DRUG PRODUCT: HYDRALAZINE HYDROCHLORIDE
Active Ingredient: HYDRALAZINE HYDROCHLORIDE
Strength: 10MG
Dosage Form/Route: TABLET;ORAL
Application: A087836 | Product #001
Applicant: STRIDES PHARMA INTERNATIONAL AG
Approved: Oct 5, 1982 | RLD: No | RS: No | Type: DISCN